FAERS Safety Report 7157339-9 (Version None)
Quarter: 2010Q4

REPORT INFORMATION
  Report Type: 
  Country: None (occurrence: None)
  Receive Date: 20101214
  Receipt Date: 20101208
  Transmission Date: 20110411
  Serious: No
  Sender: FDA-Public Use
  Company Number: US-PFIZER INC-2010167409

PATIENT
  Sex: Female
  Weight: 58.957 kg

DRUGS (4)
  1. NEURONTIN [Suspect]
     Indication: ABDOMINAL PAIN
     Dosage: 300 MG IN THE MORNING, 300 MG IN THE AFTERNOON AND 900 MG AT BEDTIME
     Route: 048
     Dates: start: 20101101
  2. WELLBUTRIN XL [Concomitant]
     Indication: BIPOLAR I DISORDER
     Dosage: 300 MG, 1X/DAY
     Route: 048
     Dates: start: 20100601
  3. TRAMADOL [Concomitant]
     Indication: ABDOMINAL PAIN
     Dosage: UNK
     Route: 048
     Dates: start: 20101101, end: 20100101
  4. MOBIC [Concomitant]
     Dosage: UNK

REACTIONS (1)
  - MYALGIA [None]
